FAERS Safety Report 6193575-6 (Version None)
Quarter: 2009Q2

REPORT INFORMATION
  Report Type: 
  Country: None (occurrence: None)
  Receive Date: 20090514
  Receipt Date: 20090506
  Transmission Date: 20091009
  Serious: Yes (Death)
  Sender: FDA-Public Use
  Company Number: 1000006207

PATIENT
  Age: 41 Year
  Sex: Male

DRUGS (4)
  1. ESCITALOPRAM [Suspect]
     Dosage: (ONCE), ORAL; 20 MG (20 MG, 1 IN 1 D), ORAL
     Route: 048
     Dates: start: 20090506, end: 20090506
  2. SOLIAN [Suspect]
     Dosage: (ONCE), ORAL; 800 MG (400 MG, 2 IN 1 D), ORAL
     Route: 048
     Dates: start: 20090506, end: 20090506
  3. TAHOR [Suspect]
     Indication: HYPERCHOLESTEROLAEMIA
     Dosage: (ONCE)
     Dates: start: 20090506, end: 20090506
  4. ANTIPSYCHOTICS [Concomitant]

REACTIONS (2)
  - COMPLETED SUICIDE [None]
  - MULTIPLE DRUG OVERDOSE INTENTIONAL [None]
